FAERS Safety Report 11481079 (Version 1)
Quarter: 2015Q3

REPORT INFORMATION
  Report Type: Spontaneous
  Country: US (occurrence: US)
  Receive Date: 20150909
  Receipt Date: 20150909
  Transmission Date: 20151125
  Serious: No
  Sender: FDA-Public Use
  Company Number: US-GLAXOSMITHKLINE-US2015GSK128543

PATIENT
  Age: 55 Year
  Sex: Male

DRUGS (3)
  1. VOTRIENT [Suspect]
     Active Substance: PAZOPANIB HYDROCHLORIDE
     Indication: RENAL CANCER
     Dosage: 600 MG, QD
     Route: 048
     Dates: start: 20150813, end: 20150905
  2. CRESTOR [Concomitant]
     Active Substance: ROSUVASTATIN CALCIUM
  3. BRILINTA [Concomitant]
     Active Substance: TICAGRELOR

REACTIONS (1)
  - Visual impairment [Unknown]

NARRATIVE: CASE EVENT DATE: 20150901
